FAERS Safety Report 8060531-2 (Version None)
Quarter: 2012Q1

REPORT INFORMATION
  Report Type: 
  Country: None (occurrence: None)
  Receive Date: 20120120
  Receipt Date: 20120112
  Transmission Date: 20120608
  Serious: Yes (Other)
  Sender: FDA-Public Use
  Company Number: CHPA2012US001145

PATIENT
  Age: 65 Year
  Sex: Female

DRUGS (8)
  1. OXYCODONE HCL [Concomitant]
     Indication: SCOLIOSIS
     Dosage: 5 MG, A TOTAL OF 4 DAILY
     Route: 048
  2. METHOCARBAMOL [Concomitant]
     Dosage: UNK, TID
     Route: 048
  3. CRESTOR [Concomitant]
     Indication: BLOOD CHOLESTEROL
     Dosage: UNK, UNK
     Route: 048
  4. NITROGLYCERIN [Concomitant]
     Dosage: UNK, PRN
     Route: 048
  5. EXCEDRIN EXTRA STRENGTH TABLETS [Suspect]
     Indication: HEADACHE
     Dosage: 2 DF, BID
     Route: 048
     Dates: start: 20120107, end: 20120107
  6. OXYCODONE HCL [Concomitant]
     Indication: BACK PAIN
  7. LEXAPRO [Concomitant]
     Dosage: 20 MG, UNK
     Route: 048
  8. AMBIEN [Concomitant]
     Indication: INSOMNIA
     Dosage: 1 DF, NIGHTLY
     Route: 048

REACTIONS (6)
  - AMNESIA [None]
  - FEELING ABNORMAL [None]
  - DIZZINESS [None]
  - CONFUSIONAL STATE [None]
  - FACE INJURY [None]
  - EPISTAXIS [None]
